FAERS Safety Report 17724425 (Version 1)
Quarter: 2020Q2

REPORT INFORMATION
  Report Type: Spontaneous
  Country: US (occurrence: US)
  Receive Date: 20200429
  Receipt Date: 20200429
  Transmission Date: 20200714
  Serious: Yes (Hospitalization, Other)
  Sender: FDA-Public Use
  Company Number: US-PFIZER INC-2020171036

PATIENT
  Age: 31 Year
  Sex: Female
  Weight: 45.81 kg

DRUGS (1)
  1. PREMPRO [Suspect]
     Active Substance: ESTROGENS, CONJUGATED\MEDROXYPROGESTERONE ACETATE
     Indication: HORMONE REPLACEMENT THERAPY
     Dosage: UNK UNK, DAILY (.3MG/1.5MG BY MOUTH DAILY, DOUBLE THE STRENGTH THEN THE DOSE WAS LOWERED)
     Route: 048
     Dates: start: 2014

REACTIONS (4)
  - Cerebrovascular accident [Unknown]
  - Eye haemorrhage [Unknown]
  - Hepatitis [Not Recovered/Not Resolved]
  - Endocarditis [Recovered/Resolved with Sequelae]

NARRATIVE: CASE EVENT DATE: 20181019
